FAERS Safety Report 5139287-9 (Version None)
Quarter: 2006Q4

REPORT INFORMATION
  Report Type: 
  Country: None (occurrence: None)
  Receive Date: 20061024
  Receipt Date: 20061016
  Transmission Date: 20070319
  Serious: Yes (Hospitalization)
  Sender: FDA-Public Use
  Company Number: TPA2006A01499

PATIENT
  Age: 58 Year
  Sex: 0
  Weight: 121 kg

DRUGS (4)
  1. PIOGLITAZONE HCL [Suspect]
     Indication: GLUCOSE TOLERANCE IMPAIRED
     Dosage: 1 IN 1 D, PER ORAL
     Route: 048
     Dates: start: 20040520
  2. BENICAR HCT (HYDROCHLOROTHIAZIDE, OLMESARTAN MEDOXOMIL) [Concomitant]
  3. ZOCOR [Concomitant]
  4. NIFEDIAC CC (NIFEDIPINE) (TABLETS) [Concomitant]

REACTIONS (4)
  - GLOMERULONEPHRITIS PROLIFERATIVE [None]
  - HAEMATURIA [None]
  - RENAL CYST [None]
  - SCOLIOSIS [None]
